FAERS Safety Report 4751139-2 (Version None)
Quarter: 2005Q3

REPORT INFORMATION
  Report Type: 
  Country: None (occurrence: None)
  Receive Date: 20050822
  Receipt Date: 20050809
  Transmission Date: 20060218
  Serious: Yes (Hospitalization, Other)
  Sender: FDA-Public Use
  Company Number: 2005113397

PATIENT
  Age: 85 Year
  Sex: Female
  Weight: 45.3597 kg

DRUGS (3)
  1. XALATAN [Suspect]
     Indication: GLAUCOMA
     Dosage: 1.5 MCG, OPHTHALMIC
     Route: 047
  2. ALPHAGAN [Concomitant]
  3. LUMIGAN [Concomitant]

REACTIONS (7)
  - ARTHRITIS [None]
  - BUNION OPERATION [None]
  - EYELASH DISCOLOURATION [None]
  - FALL [None]
  - MUSCULOSKELETAL DISORDER [None]
  - SKIN DISCOLOURATION [None]
  - TRICHIASIS [None]
